FAERS Safety Report 17979073 (Version 1)
Quarter: 2020Q3

REPORT INFORMATION
  Report Type: Spontaneous
  Country: HN (occurrence: HN)
  Receive Date: 20200703
  Receipt Date: 20200703
  Transmission Date: 20201103
  Serious: Yes (Disabling, Other)
  Sender: FDA-Public Use
  Company Number: HN-PFIZER INC-2020255710

PATIENT
  Age: 93 Year
  Sex: Male

DRUGS (1)
  1. CADUET [Suspect]
     Active Substance: AMLODIPINE BESYLATE\ATORVASTATIN CALCIUM
     Dosage: UNK
     Route: 048
     Dates: end: 20200629

REACTIONS (2)
  - Speech disorder [Unknown]
  - Blindness [Unknown]
